FAERS Safety Report 4664737-1 (Version None)
Quarter: 2005Q2

REPORT INFORMATION
  Report Type: 
  Country: None (occurrence: None)
  Receive Date: 20050517
  Receipt Date: 20050517
  Transmission Date: 20051028
  Serious: Yes (Other)
  Sender: FDA-Public Use
  Company Number: None

PATIENT
  Sex: Female

DRUGS (2)
  1. ULTRAVIST 240 [Suspect]
     Indication: DIAGNOSTIC PROCEDURE
     Dosage: 55 ML IV
     Route: 042
     Dates: start: 20050502
  2. ULTRAVIST 240 [Suspect]
     Indication: RENAL FAILURE CHRONIC
     Dosage: 55 ML IV
     Route: 042
     Dates: start: 20050502

REACTIONS (4)
  - ERYTHEMA [None]
  - OXYGEN SATURATION DECREASED [None]
  - POST PROCEDURAL COMPLICATION [None]
  - WHEEZING [None]
